FAERS Safety Report 7515300-6 (Version None)
Quarter: 2011Q2

REPORT INFORMATION
  Report Type: 
  Country: None (occurrence: None)
  Receive Date: 20110601
  Receipt Date: 20110524
  Transmission Date: 20111010
  Serious: Yes (Hospitalization, Other)
  Sender: FDA-Public Use
  Company Number: US-ELI_LILLY_AND_COMPANY-US201105007906

PATIENT
  Age: 57 Year
  Sex: Male

DRUGS (7)
  1. NITRO                              /00003201/ [Concomitant]
  2. EFFIENT [Suspect]
     Indication: ACUTE MYOCARDIAL INFARCTION
     Dosage: UNK, UNKNOWN
     Dates: start: 20110212
  3. SIMVASTATIN [Concomitant]
  4. COREG [Concomitant]
  5. NEXIUM [Concomitant]
  6. LEVAQUIN [Concomitant]
  7. ASPIRIN [Concomitant]

REACTIONS (3)
  - LOSS OF CONSCIOUSNESS [None]
  - SPEECH DISORDER [None]
  - BLOOD PRESSURE DECREASED [None]
